FAERS Safety Report 21224316 (Version 1)
Quarter: 2022Q3

REPORT INFORMATION
  Report Type: Spontaneous
  Country: AU (occurrence: AU)
  Receive Date: 20220817
  Receipt Date: 20220817
  Transmission Date: 20221026
  Serious: Yes (Other)
  Sender: FDA-Public Use
  Company Number: AU-TAKEDA-2022TUS055731

PATIENT
  Sex: Female

DRUGS (1)
  1. INTUNIV [Suspect]
     Active Substance: GUANFACINE HYDROCHLORIDE
     Indication: Attention deficit hyperactivity disorder
     Dosage: UNK
     Route: 065

REACTIONS (4)
  - Growth failure [Unknown]
  - Hyperphagia [Unknown]
  - Disturbance in attention [Unknown]
  - Unhealthy lifestyle [Unknown]
